FAERS Safety Report 15601528 (Version 3)
Quarter: 2019Q1

REPORT INFORMATION
  Report Type: Spontaneous
  Country: US (occurrence: US)
  Receive Date: 20181109
  Receipt Date: 20190227
  Transmission Date: 20190417
  Serious: No
  Sender: FDA-Public Use
  Company Number: US-PFIZER INC-2018457219

PATIENT
  Age: 79 Year
  Sex: Female
  Weight: 75.28 kg

DRUGS (1)
  1. IBRANCE [Suspect]
     Active Substance: PALBOCICLIB
     Indication: BREAST CANCER FEMALE
     Dosage: 100 MG, CYCLIC (D1-D21, Q28D)
     Route: 048
     Dates: start: 20181026, end: 20190215

REACTIONS (5)
  - Neoplasm progression [Unknown]
  - Diarrhoea [Unknown]
  - Cough [Unknown]
  - Tumour marker increased [Unknown]
  - Dizziness [Unknown]

NARRATIVE: CASE EVENT DATE: 20181029
